FAERS Safety Report 22170089 (Version 9)
Quarter: 2024Q1

REPORT INFORMATION
  Report Type: Report from Study
  Country: US (occurrence: US)
  Receive Date: 20230404
  Receipt Date: 20240108
  Transmission Date: 20240410
  Serious: No
  Sender: FDA-Public Use
  Company Number: US-002147023-NVSC2023US077194

PATIENT
  Age: 49 Year
  Sex: Male

DRUGS (3)
  1. ILARIS [Suspect]
     Active Substance: CANAKINUMAB
     Indication: Pyrexia
     Dosage: 300 MG, QMO (EVERY 30 DAYS)
     Route: 058
     Dates: start: 20220418
  2. ILARIS [Suspect]
     Active Substance: CANAKINUMAB
     Dosage: 300 MG, QMO
     Route: 058
     Dates: start: 20220418
  3. ILARIS [Suspect]
     Active Substance: CANAKINUMAB
     Dosage: 300 MG, QMO
     Route: 058
     Dates: start: 20220422

REACTIONS (4)
  - Influenza like illness [Unknown]
  - Pyrexia [Unknown]
  - Illness [Unknown]
  - Inappropriate schedule of product administration [Unknown]

NARRATIVE: CASE EVENT DATE: 20230404
